FAERS Safety Report 17766572 (Version 4)
Quarter: 2021Q4

REPORT INFORMATION
  Report Type: Report from Study
  Country: US (occurrence: US)
  Receive Date: 20200511
  Receipt Date: 20211222
  Transmission Date: 20220303
  Serious: Yes (Other)
  Sender: FDA-Public Use
  Company Number: US-NOVARTISPH-NVSC2020US125751

PATIENT
  Age: 52 Year
  Sex: Female

DRUGS (1)
  1. GILENYA [Suspect]
     Active Substance: FINGOLIMOD HYDROCHLORIDE
     Indication: Relapsing-remitting multiple sclerosis
     Dosage: 0.5 MG, QD
     Route: 048
     Dates: start: 20131123

REACTIONS (5)
  - Multiple sclerosis [Unknown]
  - Gait inability [Unknown]
  - Dry eye [Not Recovered/Not Resolved]
  - Visual impairment [Unknown]
  - Expired product administered [Unknown]

NARRATIVE: CASE EVENT DATE: 20131122
